FAERS Safety Report 19035072 (Version 1)
Quarter: 2021Q1

REPORT INFORMATION
  Report Type: Report from Study
  Country: US (occurrence: US)
  Receive Date: 20210320
  Receipt Date: 20210320
  Transmission Date: 20210420
  Serious: Yes (Death)
  Sender: FDA-Public Use
  Company Number: US-ASTRAZENECA-2021A161176

PATIENT
  Age: 26388 Day
  Sex: Female

DRUGS (14)
  1. MAGNESIUM [Concomitant]
     Active Substance: MAGNESIUM
  2. SERTRALINE [Concomitant]
     Active Substance: SERTRALINE HYDROCHLORIDE
  3. SPIRIVA [Concomitant]
     Active Substance: TIOTROPIUM BROMIDE MONOHYDRATE
  4. LORAZEPAM. [Concomitant]
     Active Substance: LORAZEPAM
  5. POTASSIUM [Concomitant]
     Active Substance: POTASSIUM
  6. FORMOTEROL FUMARATE [Concomitant]
     Active Substance: FORMOTEROL FUMARATE
  7. MELATONIN + L?THEANINE [Concomitant]
  8. MULTIPLE VITAMINS [Concomitant]
     Active Substance: VITAMINS
  9. RANITIDINE. [Concomitant]
     Active Substance: RANITIDINE
  10. TRAMADOL?ACETAMINOPHEN [Concomitant]
     Active Substance: ACETAMINOPHEN\TRAMADOL
  11. VITAMIN K [Concomitant]
     Active Substance: PHYTONADIONE
  12. TAGRISSO [Suspect]
     Active Substance: OSIMERTINIB
     Indication: NON-SMALL CELL LUNG CANCER
     Route: 048
     Dates: start: 20190207
  13. ABILIFY [Concomitant]
     Active Substance: ARIPIPRAZOLE
  14. ALBUTEROL. [Concomitant]
     Active Substance: ALBUTEROL

REACTIONS (1)
  - Death [Fatal]

NARRATIVE: CASE EVENT DATE: 20210209
